FAERS Safety Report 8779454 (Version 1)
Quarter: 2012Q4

REPORT INFORMATION
  Report Type: 
  Country: US (occurrence: US)
  Receive Date: 20120912
  Receipt Date: 20120912
  Transmission Date: 20130627
  Serious: Yes (Hospitalization)
  Sender: FDA-Public Use
  Company Number: US-B.I. PHARMACEUTICALS,INC./RIDGEFIELD-2012-BP-22129BP

PATIENT
  Sex: Male
  Weight: 66 kg

DRUGS (15)
  1. COMBIVENT [Suspect]
     Indication: CHRONIC OBSTRUCTIVE PULMONARY DISEASE
     Route: 055
  2. CILOSTAZOL [Concomitant]
     Indication: PERIPHERAL VASCULAR DISORDER
     Dosage: 50 mg
     Route: 048
  3. ONE A DAY VITAMIN [Concomitant]
     Indication: SUPPLEMENTATION THERAPY
     Route: 048
  4. LEVETIRACETAM [Concomitant]
     Indication: CONVULSION
     Dosage: 1500 mg
     Route: 048
  5. DILTIAZEM [Concomitant]
     Indication: HYPERTENSION
     Dosage: 180 mg
     Route: 048
  6. LEXAPRO [Concomitant]
     Indication: DEPRESSION
     Dosage: 10 mg
     Route: 048
  7. FUROSEMIDE [Concomitant]
     Indication: OEDEMA PERIPHERAL
     Dosage: 40 mg
     Route: 048
  8. BAYER ASPIRIN [Concomitant]
     Indication: CEREBROVASCULAR ACCIDENT PROPHYLAXIS
     Dosage: 325 mg
     Route: 048
  9. FOLIC ACID [Concomitant]
     Dosage: 1 mg
     Route: 048
  10. RAMIPRIL [Concomitant]
     Indication: HYPERTENSION
     Dosage: 10 mg
     Route: 048
  11. SIMVASTATIN [Concomitant]
     Indication: BLOOD CHOLESTEROL INCREASED
     Dosage: 80 mg
     Route: 048
  12. ADVAIR [Concomitant]
     Indication: DYSPNOEA
     Route: 055
  13. POTASSIUM CHLORIDE [Concomitant]
     Indication: HYPERTENSION
     Dosage: 20 mg
     Route: 048
  14. CLONAZEPAM [Concomitant]
     Indication: CONVULSION
     Dosage: 1 mg
     Route: 048
  15. LORATADINE [Concomitant]
     Indication: SEASONAL ALLERGY
     Dosage: 10 mg
     Route: 048

REACTIONS (3)
  - Dyspnoea [Not Recovered/Not Resolved]
  - Restless legs syndrome [Not Recovered/Not Resolved]
  - Dyspepsia [Not Recovered/Not Resolved]
